FAERS Safety Report 23797715 (Version 1)
Quarter: 2024Q2

REPORT INFORMATION
  Report Type: Report from Study
  Country: CA (occurrence: CA)
  Receive Date: 20240430
  Receipt Date: 20240430
  Transmission Date: 20240715
  Serious: Yes (Other)
  Sender: FDA-Public Use
  Company Number: CA-BAYER-2024A062650

PATIENT
  Sex: Female

DRUGS (1)
  1. EYLEA [Suspect]
     Active Substance: AFLIBERCEPT
     Indication: Age-related macular degeneration
     Dosage: UNK, 40 MG/ML
     Dates: start: 20240129

REACTIONS (8)
  - Blindness transient [Unknown]
  - Eye infection [Unknown]
  - Headache [Recovered/Resolved]
  - Photopsia [Unknown]
  - Nausea [Unknown]
  - Dizziness [Unknown]
  - Eye pain [Unknown]
  - Ocular hyperaemia [Unknown]
